FAERS Safety Report 7770137-8 (Version None)
Quarter: 2011Q3

REPORT INFORMATION
  Report Type: 
  Country: None (occurrence: None)
  Receive Date: 20110922
  Receipt Date: 20100303
  Transmission Date: 20111222
  Serious: No
  Sender: FDA-Public Use
  Company Number: US-ASTRAZENECA-2006UW24242

PATIENT
  Age: 14310 Day
  Sex: Female
  Weight: 96.2 kg

DRUGS (23)
  1. HYDROCHLOROTHIAZIDE [Concomitant]
  2. LEVAQUIN [Concomitant]
  3. RANITIDINE [Concomitant]
  4. GLYBURIDE [Concomitant]
  5. BUTALBITAL [Concomitant]
  6. ACETAMINOPHEN [Concomitant]
  7. LIPITOR [Concomitant]
  8. SEROQUEL [Suspect]
     Route: 048
     Dates: start: 20030925
  9. SEROQUEL [Suspect]
     Route: 048
     Dates: start: 20030925
  10. FLUCONAZOLE [Concomitant]
  11. SEROQUEL [Suspect]
     Indication: SLEEP DISORDER
     Dosage: 25 MG-50 MG
     Route: 048
     Dates: start: 20030827
  12. COREG [Concomitant]
     Dates: start: 20011002
  13. KLONOPIN [Concomitant]
     Dosage: 1.00 MG-1.75 MG
     Dates: start: 20030827
  14. SEROQUEL [Suspect]
     Route: 048
     Dates: start: 20030925
  15. CYCLOBENZAPRINE HYDROCHLORIDE [Concomitant]
  16. PHENAZOPYRIDINE HCL TAB [Concomitant]
  17. PAXIL [Concomitant]
  18. SEROQUEL [Suspect]
     Indication: ANXIETY
     Dosage: 25 MG-50 MG
     Route: 048
     Dates: start: 20030827
  19. SEROQUEL [Suspect]
     Indication: PSYCHOTIC DISORDER
     Dosage: 25 MG-50 MG
     Route: 048
     Dates: start: 20030827
  20. AVANDARYL [Concomitant]
  21. PALGIC [Concomitant]
  22. PROZAC [Concomitant]
     Indication: DEPRESSIVE SYMPTOM
     Dosage: 20 MG-40 MG
     Dates: start: 20030827
  23. CAFFEINE [Concomitant]

REACTIONS (15)
  - OROPHARYNGEAL PAIN [None]
  - VULVOVAGINAL CANDIDIASIS [None]
  - RHINITIS ALLERGIC [None]
  - TENSION HEADACHE [None]
  - URINARY TRACT INFECTION [None]
  - ABDOMINAL PAIN [None]
  - HYPERTENSION [None]
  - ROAD TRAFFIC ACCIDENT [None]
  - PHARYNGITIS [None]
  - NECK PAIN [None]
  - CHEST PAIN [None]
  - VAGINITIS BACTERIAL [None]
  - GASTROOESOPHAGEAL REFLUX DISEASE [None]
  - TENDERNESS [None]
  - TYPE 2 DIABETES MELLITUS [None]
